FAERS Safety Report 8102698-3 (Version None)
Quarter: 2012Q1

REPORT INFORMATION
  Report Type: 
  Country: None (occurrence: None)
  Receive Date: 20120201
  Receipt Date: 20120123
  Transmission Date: 20120608
  Serious: Yes (Other)
  Sender: FDA-Public Use
  Company Number: US-NAPPMUNDI-USA-2012-0081474

PATIENT
  Age: 1 Year
  Sex: Male

DRUGS (1)
  1. OXYCONTIN [Suspect]
     Indication: ACCIDENTAL EXPOSURE

REACTIONS (1)
  - ACCIDENTAL EXPOSURE [None]
